FAERS Safety Report 13530479 (Version 49)
Quarter: 2020Q4

REPORT INFORMATION
  Report Type: Spontaneous
  Country: CA (occurrence: CA)
  Receive Date: 20170510
  Receipt Date: 20201216
  Transmission Date: 20210113
  Serious: Yes (Hospitalization, Other)
  Sender: FDA-Public Use
  Company Number: CA-ROCHE-1931363

PATIENT
  Age: 37 Year
  Sex: Female

DRUGS (43)
  1. XOLAIR [Suspect]
     Active Substance: OMALIZUMAB
     Route: 058
     Dates: start: 20170906
  2. XOLAIR [Suspect]
     Active Substance: OMALIZUMAB
     Route: 058
     Dates: start: 20181226
  3. XOLAIR [Suspect]
     Active Substance: OMALIZUMAB
     Route: 058
     Dates: start: 20190329
  4. XOLAIR [Suspect]
     Active Substance: OMALIZUMAB
     Route: 058
     Dates: start: 20190416
  5. XOLAIR [Suspect]
     Active Substance: OMALIZUMAB
     Route: 058
     Dates: start: 20190618
  6. XOLAIR [Suspect]
     Active Substance: OMALIZUMAB
     Dosage: UK
     Route: 058
  7. XOLAIR [Suspect]
     Active Substance: OMALIZUMAB
     Route: 058
  8. CLONAZEPAM. [Concomitant]
     Active Substance: CLONAZEPAM
     Indication: PRODUCT USED FOR UNKNOWN INDICATION
     Dosage: 0.5 MG, QD
     Route: 065
  9. XOLAIR [Suspect]
     Active Substance: OMALIZUMAB
     Route: 058
     Dates: start: 20170628
  10. XOLAIR [Suspect]
     Active Substance: OMALIZUMAB
     Route: 058
     Dates: start: 20180622
  11. XOLAIR [Suspect]
     Active Substance: OMALIZUMAB
     Route: 058
     Dates: start: 20190517
  12. SYMBICORT [Concomitant]
     Active Substance: BUDESONIDE\FORMOTEROL FUMARATE DIHYDRATE
     Indication: ASTHMA
     Dosage: 2 DF, (200 UG, BUDESONIDE, 6 UG FORMOTEROL FUMARATE) BID
     Route: 055
     Dates: start: 20160815
  13. XOLAIR [Suspect]
     Active Substance: OMALIZUMAB
     Route: 058
     Dates: start: 20170505
  14. XOLAIR [Suspect]
     Active Substance: OMALIZUMAB
     Route: 058
     Dates: start: 20170530
  15. XOLAIR [Suspect]
     Active Substance: OMALIZUMAB
     Route: 058
     Dates: start: 20190114
  16. XOLAIR [Suspect]
     Active Substance: OMALIZUMAB
     Route: 058
     Dates: start: 20190219
  17. XOLAIR [Suspect]
     Active Substance: OMALIZUMAB
     Route: 058
     Dates: start: 20191016
  18. XOLAIR [Suspect]
     Active Substance: OMALIZUMAB
     Route: 058
     Dates: start: 20200506
  19. AXERT [Concomitant]
     Active Substance: ALMOTRIPTAN MALATE
     Indication: MIGRAINE
     Dosage: PRN
     Route: 048
     Dates: start: 20080101
  20. XOLAIR [Suspect]
     Active Substance: OMALIZUMAB
     Route: 058
     Dates: start: 20190312
  21. XOLAIR [Suspect]
     Active Substance: OMALIZUMAB
     Route: 058
     Dates: start: 20190705
  22. XOLAIR [Suspect]
     Active Substance: OMALIZUMAB
     Route: 058
     Dates: start: 20200110
  23. XOLAIR [Suspect]
     Active Substance: OMALIZUMAB
     Route: 058
     Dates: start: 20190201
  24. XOLAIR [Suspect]
     Active Substance: OMALIZUMAB
     Dosage: RECEIVED 1 WEEK EARLY
     Route: 058
     Dates: start: 20190531
  25. XOLAIR [Suspect]
     Active Substance: OMALIZUMAB
     Route: 058
     Dates: start: 20191115
  26. XOLAIR [Suspect]
     Active Substance: OMALIZUMAB
     Route: 058
     Dates: start: 20191211
  27. XOLAIR [Suspect]
     Active Substance: OMALIZUMAB
     Route: 058
     Dates: start: 20200129
  28. XOLAIR [Suspect]
     Active Substance: OMALIZUMAB
     Route: 058
     Dates: start: 20200422
  29. XOLAIR [Suspect]
     Active Substance: OMALIZUMAB
     Route: 058
     Dates: start: 20190219
  30. XOLAIR [Suspect]
     Active Substance: OMALIZUMAB
     Route: 058
     Dates: start: 20191224
  31. XOLAIR [Suspect]
     Active Substance: OMALIZUMAB
     Route: 058
     Dates: start: 20200619
  32. DICETEL [Concomitant]
     Active Substance: PINAVERIUM BROMIDE
     Indication: IRRITABLE BOWEL SYNDROME
     Dosage: 1 DF, UNK
     Route: 048
     Dates: start: 20010101
  33. XOLAIR [Suspect]
     Active Substance: OMALIZUMAB
     Indication: ASTHMA
     Route: 058
     Dates: start: 20170405
  34. XOLAIR [Suspect]
     Active Substance: OMALIZUMAB
     Route: 058
     Dates: start: 20170804
  35. XOLAIR [Suspect]
     Active Substance: OMALIZUMAB
     Route: 058
     Dates: start: 20180914
  36. XOLAIR [Suspect]
     Active Substance: OMALIZUMAB
     Route: 058
     Dates: start: 20190827
  37. XOLAIR [Suspect]
     Active Substance: OMALIZUMAB
     Route: 058
  38. SYMBICORT [Concomitant]
     Active Substance: BUDESONIDE\FORMOTEROL FUMARATE DIHYDRATE
     Dosage: 3 DF, QD
     Route: 055
  39. XOLAIR [Suspect]
     Active Substance: OMALIZUMAB
     Route: 058
     Dates: start: 201902
  40. XOLAIR [Suspect]
     Active Substance: OMALIZUMAB
     Route: 058
     Dates: start: 20191030
  41. XOLAIR [Suspect]
     Active Substance: OMALIZUMAB
     Route: 058
     Dates: start: 20200212
  42. XOLAIR [Suspect]
     Active Substance: OMALIZUMAB
     Route: 058
     Dates: start: 20200311
  43. DIAMOX SEQUELS [Concomitant]
     Active Substance: ACETAZOLAMIDE
     Indication: PRODUCT USED FOR UNKNOWN INDICATION
     Dosage: 1 DF, 2 PILLS TID (250/TABS)
     Route: 065

REACTIONS (57)
  - Hypersensitivity [Recovered/Resolved]
  - Anxiety [Unknown]
  - Syncope [Not Recovered/Not Resolved]
  - Mast cell activation syndrome [Not Recovered/Not Resolved]
  - Pelvic pain [Unknown]
  - Muscle spasms [Unknown]
  - Wheezing [Unknown]
  - Headache [Unknown]
  - Urticaria [Unknown]
  - Forced expiratory volume decreased [Not Recovered/Not Resolved]
  - Body temperature decreased [Unknown]
  - Rash [Recovered/Resolved]
  - Spinal column injury [Unknown]
  - Chest discomfort [Unknown]
  - Pruritus [Recovered/Resolved]
  - Migraine [Unknown]
  - Food intolerance [Unknown]
  - Joint dislocation [Unknown]
  - Palatal swelling [Recovered/Resolved]
  - Rhinitis [Recovered/Resolved]
  - Fatigue [Recovered/Resolved]
  - Pain [Unknown]
  - Nonspecific reaction [Unknown]
  - Drug ineffective [Unknown]
  - Heart rate increased [Recovering/Resolving]
  - Asthma [Recovering/Resolving]
  - Injury [Unknown]
  - Weight decreased [Unknown]
  - Influenza like illness [Unknown]
  - Food allergy [Unknown]
  - Nausea [Unknown]
  - Ehlers-Danlos syndrome [Unknown]
  - Dizziness [Not Recovered/Not Resolved]
  - Bursitis [Unknown]
  - Mouth swelling [Recovered/Resolved]
  - Sneezing [Recovered/Resolved]
  - Vertigo [Recovering/Resolving]
  - Arthralgia [Unknown]
  - Flushing [Recovered/Resolved]
  - Angioedema [Unknown]
  - Blood pressure increased [Recovering/Resolving]
  - Hyperhidrosis [Recovered/Resolved]
  - Intracranial pressure increased [Not Recovered/Not Resolved]
  - Pharyngeal swelling [Recovered/Resolved]
  - Rhinorrhoea [Unknown]
  - Dyspnoea [Recovered/Resolved]
  - Cough [Unknown]
  - Injection site erythema [Unknown]
  - Middle insomnia [Unknown]
  - Swelling face [Recovered/Resolved]
  - Injection site pain [Unknown]
  - Vomiting [Not Recovered/Not Resolved]
  - Seasonal allergy [Unknown]
  - Anaphylactic reaction [Recovered/Resolved]
  - Inappropriate schedule of product administration [Unknown]
  - Dysphonia [Unknown]
  - Tachycardia [Recovering/Resolving]

NARRATIVE: CASE EVENT DATE: 20170405
